FAERS Safety Report 6394298-0 (Version None)
Quarter: 2009Q4

REPORT INFORMATION
  Report Type: 
  Country: None (occurrence: None)
  Receive Date: 20091006
  Receipt Date: 20090922
  Transmission Date: 20100525
  Serious: Yes (Other)
  Sender: FDA-Public Use
  Company Number: DSA_41754_2009

PATIENT
  Age: 41 Year
  Sex: Female
  Weight: 79.3795 kg

DRUGS (3)
  1. WELLBUTRIN XL [Suspect]
     Indication: DRUG USE FOR UNKNOWN INDICATION
     Dosage: 300 MG QD ORAL
     Route: 048
  2. CIPRALEX /01588501/ [Concomitant]
  3. RISPERDAL [Concomitant]

REACTIONS (2)
  - OEDEMA PERIPHERAL [None]
  - THROMBOSIS [None]
